FAERS Safety Report 7122861-8 (Version None)
Quarter: 2010Q4

REPORT INFORMATION
  Report Type: 
  Country: None (occurrence: None)
  Receive Date: 20101124
  Receipt Date: 20101116
  Transmission Date: 20110411
  Serious: Yes (Other)
  Sender: FDA-Public Use
  Company Number: JP-ROCHE-738212

PATIENT
  Sex: Female
  Weight: 52 kg

DRUGS (10)
  1. ACTEMRA [Suspect]
     Indication: CASTLEMAN'S DISEASE
     Route: 041
     Dates: start: 20060502
  2. BUFFERIN [Suspect]
     Indication: THROMBOSIS PROPHYLAXIS
     Route: 048
     Dates: start: 20060101, end: 20101026
  3. VITAMEDIN [Concomitant]
     Dosage: DOSAGE IS UNCERTAIN.
     Route: 048
     Dates: start: 20060101, end: 20061026
  4. GASTER [Concomitant]
     Route: 048
     Dates: start: 20060101, end: 20101026
  5. HACHIAZULE [Concomitant]
     Dosage: ROUTE: OROPHRINGEAL.  DOSE FORM: INCLUDE ASPECT
     Route: 050
     Dates: start: 20060101, end: 20070109
  6. MERISLON [Concomitant]
     Dosage: DOSAGE IS UNCERTAIN.
     Route: 048
     Dates: start: 20060524, end: 20101026
  7. BONALON [Concomitant]
     Route: 048
     Dates: start: 20070320, end: 20101026
  8. OLMETEC [Concomitant]
     Route: 048
     Dates: start: 20090324, end: 20101026
  9. SELBEX [Concomitant]
     Dosage: DOSAGE IS UNCERTAIN.
     Route: 048
     Dates: start: 20090908, end: 20101026
  10. ISODINE [Concomitant]
     Dosage: ROUTE: OROPHARINGIAL, PROPER QUENTITY.
     Route: 050
     Dates: start: 20090818, end: 20101026

REACTIONS (1)
  - CEREBRAL HAEMORRHAGE [None]
